FAERS Safety Report 12836095 (Version 1)
Quarter: 2016Q4

REPORT INFORMATION
  Report Type: Report from Study
  Country: US (occurrence: US)
  Receive Date: 20161011
  Receipt Date: 20161011
  Transmission Date: 20170207
  Serious: Yes (Other)
  Sender: FDA-Public Use
  Company Number: US-BAYER-2016-171898

PATIENT
  Age: 68 Year
  Sex: Female

DRUGS (2)
  1. STIVARGA [Suspect]
     Active Substance: REGORAFENIB
     Indication: COLORECTAL CANCER METASTATIC
     Dosage: 160 MG, QD
     Route: 048
     Dates: start: 20160830, end: 20160908
  2. STIVARGA [Suspect]
     Active Substance: REGORAFENIB
     Indication: COLORECTAL CANCER METASTATIC
     Dosage: 120 MG, QD
     Route: 048
     Dates: start: 20160926

REACTIONS (13)
  - Bone pain [None]
  - Pruritus [None]
  - Dysphonia [None]
  - Hypoaesthesia [None]
  - Pain in extremity [None]
  - Muscle spasms [Recovering/Resolving]
  - Dysphonia [Not Recovered/Not Resolved]
  - Abasia [None]
  - Neck pain [None]
  - Chest pain [Recovered/Resolved]
  - Oral mucosal blistering [Not Recovered/Not Resolved]
  - Insomnia [Not Recovered/Not Resolved]
  - Pain in extremity [Recovering/Resolving]

NARRATIVE: CASE EVENT DATE: 2016
